FAERS Safety Report 9872182 (Version 2)
Quarter: 2014Q1

REPORT INFORMATION
  Report Type: Spontaneous
  Country: US (occurrence: US)
  Receive Date: 20140205
  Receipt Date: 20140205
  Transmission Date: 20141002
  Serious: No
  Sender: FDA-Public Use
  Company Number: US-ALLERGAN-1306475US

PATIENT
  Age: 49 Year
  Sex: Female

DRUGS (3)
  1. BOTOX COSMETIC [Suspect]
     Indication: SKIN WRINKLING
     Dosage: 22 UNITS, SINGLE
     Route: 030
  2. BOTOX COSMETIC [Suspect]
     Indication: SKIN WRINKLING
     Dosage: UNK
     Dates: start: 201303, end: 201303
  3. BOTOX COSMETIC [Suspect]
     Dosage: UNK
     Dates: start: 2011, end: 2011

REACTIONS (4)
  - Skin wrinkling [Recovered/Resolved]
  - Skin tightness [Recovered/Resolved]
  - Therapeutic response decreased [Unknown]
  - Therapeutic response decreased [Unknown]
